FAERS Safety Report 8063823-6 (Version None)
Quarter: 2012Q1

REPORT INFORMATION
  Report Type: 
  Country: None (occurrence: None)
  Receive Date: 20120123
  Receipt Date: 20120112
  Transmission Date: 20120608
  Serious: Yes (Hospitalization, Disabling, Other)
  Sender: FDA-Public Use
  Company Number: US-MERCK-1104USA03483

PATIENT
  Age: 87 Year
  Sex: Female
  Weight: 56 kg

DRUGS (3)
  1. FOSAMAX [Suspect]
     Indication: OSTEOPOROSIS
     Route: 048
     Dates: start: 20010720, end: 20010101
  2. FOSAMAX [Suspect]
     Route: 048
     Dates: start: 20011008, end: 20080901
  3. FOSAMAX [Suspect]
     Route: 048
     Dates: start: 20080101, end: 20080901

REACTIONS (65)
  - HYPOTHYROIDISM [None]
  - HYPONATRAEMIA [None]
  - PLEURAL EFFUSION [None]
  - OSTEONECROSIS OF JAW [None]
  - DEAFNESS [None]
  - TOOTH DISORDER [None]
  - CAROTID ARTERY STENOSIS [None]
  - HYPOMAGNESAEMIA [None]
  - OCCULT BLOOD [None]
  - TACHYCARDIA [None]
  - HAEMOGLOBIN DECREASED [None]
  - FALL [None]
  - ATRIAL TACHYCARDIA [None]
  - TOOTHACHE [None]
  - HAEMORRHAGIC ANAEMIA [None]
  - PAIN IN JAW [None]
  - MUSCULOSKELETAL CHEST PAIN [None]
  - ACUTE RESPIRATORY FAILURE [None]
  - ARRHYTHMIA [None]
  - OSTEOARTHRITIS [None]
  - BACTERIAL INFECTION [None]
  - MYOSITIS [None]
  - CELLULITIS [None]
  - INSOMNIA [None]
  - VITAMIN D DEFICIENCY [None]
  - FEMUR FRACTURE [None]
  - MENTAL STATUS CHANGES [None]
  - FATIGUE [None]
  - CONVULSION [None]
  - ORAL INFECTION [None]
  - DENTAL FISTULA [None]
  - SENSITIVITY OF TEETH [None]
  - ANAEMIA [None]
  - HYPERLIPIDAEMIA [None]
  - LEUKOCYTOSIS [None]
  - HYPOKALAEMIA [None]
  - HYPERTENSION [None]
  - BLOOD POTASSIUM DECREASED [None]
  - OSTEOMYELITIS [None]
  - LUNG NEOPLASM [None]
  - CEREBROVASCULAR ACCIDENT [None]
  - ORAL TORUS [None]
  - LABILE HYPERTENSION [None]
  - CATARACT [None]
  - SKELETAL INJURY [None]
  - BONE MARROW DISORDER [None]
  - DYSPNOEA [None]
  - CARDIAC MURMUR [None]
  - HYPOTENSION [None]
  - PAROTITIS [None]
  - PAROTID ABSCESS [None]
  - INAPPROPRIATE ANTIDIURETIC HORMONE SECRETION [None]
  - COMA [None]
  - ABDOMINAL PAIN [None]
  - SYNCOPE [None]
  - RESTLESS LEGS SYNDROME [None]
  - DIARRHOEA [None]
  - ARTHROPATHY [None]
  - RENAL FAILURE ACUTE [None]
  - SUPRAVENTRICULAR TACHYCARDIA [None]
  - LOOSE TOOTH [None]
  - MUSCLE SPASMS [None]
  - IMPAIRED HEALING [None]
  - EXOSTOSIS [None]
  - BLOOD CALCIUM DECREASED [None]
